FAERS Safety Report 5792076-4 (Version None)
Quarter: 2008Q2

REPORT INFORMATION
  Report Type: 
  Country: None (occurrence: None)
  Receive Date: 20080625
  Receipt Date: 20080512
  Transmission Date: 20081010
  Serious: No
  Sender: FDA-Public Use
  Company Number: US-WYE-H04085708

PATIENT
  Age: 58 Year
  Sex: Male

DRUGS (3)
  1. TORISEL [Suspect]
     Indication: RENAL CELL CARCINOMA
     Dosage: 40 MG 1X PER 1 WK, INTRAVENOUS : 45 MG 1X PER 1 WK, INTRAVENOUS
     Route: 042
     Dates: start: 20071029
  2. PHENOBARBITAL TAB [Concomitant]
  3. DILANTIN [Concomitant]

REACTIONS (4)
  - PRODUCTIVE COUGH [None]
  - RASH ERYTHEMATOUS [None]
  - RASH MACULO-PAPULAR [None]
  - RASH PRURITIC [None]
